FAERS Safety Report 4584816-7 (Version None)
Quarter: 2005Q1

REPORT INFORMATION
  Report Type: 
  Country: None (occurrence: None)
  Receive Date: 20050214
  Receipt Date: 20050208
  Transmission Date: 20050727
  Serious: Yes (Other)
  Sender: FDA-Public Use
  Company Number: 2005UW02231

PATIENT

DRUGS (4)
  1. SEROQUEL [Suspect]
     Dosage: 500 MG DAILY PO
     Route: 048
  2. RISPERIDONE [Concomitant]
  3. DEPAKOTE [Concomitant]
  4. PAXIL [Concomitant]

REACTIONS (1)
  - WHITE BLOOD CELL COUNT DECREASED [None]
